FAERS Safety Report 4745740-X (Version None)
Quarter: 2005Q3

REPORT INFORMATION
  Report Type: 
  Country: None (occurrence: None)
  Receive Date: 20050811
  Receipt Date: 20050801
  Transmission Date: 20060218
  Serious: Yes (Other)
  Sender: FDA-Public Use
  Company Number: 2005108508

PATIENT
  Age: 71 Year
  Sex: Female

DRUGS (8)
  1. VERAPAMIL [Suspect]
     Indication: ILL-DEFINED DISORDER
     Dosage: 240 MG (120 MG, TWICE DAILY), ORAL
     Route: 048
  2. ATENOLOL [Suspect]
     Indication: ILL-DEFINED DISORDER
     Dosage: 100 MG (50 MG, TWICE DAILY), ORAL
     Route: 048
  3. FUROSEMIDE [Concomitant]
  4. ESOMEPRAZOLE (ESOMEPRZZOLE) [Concomitant]
  5. CLOPIDOGREL BISULFATE [Concomitant]
  6. AMLODIPINE [Concomitant]
  7. SIMVASTATIN [Concomitant]
  8. ITRACANAZOLE (ITRACONAZOLE) [Concomitant]

REACTIONS (2)
  - BRADYCARDIA [None]
  - LOSS OF CONSCIOUSNESS [None]
